FAERS Safety Report 8571830-X (Version None)
Quarter: 2012Q3

REPORT INFORMATION
  Report Type: 
  Country: None (occurrence: None)
  Receive Date: 20120806
  Receipt Date: 20120728
  Transmission Date: 20120928
  Serious: Yes (Death, Hospitalization, Other)
  Sender: FDA-Public Use
  Company Number: US-SANOFI-AVENTIS-2012SA054073

PATIENT
  Age: 60 Year
  Sex: Male
  Weight: 68.8 kg

DRUGS (8)
  1. CABAZITAXEL [Suspect]
     Indication: COLON CANCER
     Route: 042
     Dates: start: 20120718, end: 20120718
  2. MILK OF MAGNESIA TAB [Concomitant]
     Dosage: DOSE:1 TEASPOON(S)
     Route: 048
  3. SODIUM CHLORIDE [Concomitant]
     Route: 041
     Dates: start: 20120725, end: 20120725
  4. ALUMINIUM HYDROXIDE GEL/MAGNESIUM HYDROXIDE [Concomitant]
     Dosage: DOSE:1 TEASPOON(S)
     Route: 065
     Dates: start: 20120725
  5. MEGACE [Concomitant]
     Route: 048
  6. CLOTRIMAZOLE [Concomitant]
     Dosage: DOSE:1 TEASPOON(S)
     Route: 065
     Dates: start: 20120725
  7. VICODIN [Concomitant]
     Route: 048
     Dates: start: 20120713
  8. MAGNESIUM [Concomitant]
     Route: 048
     Dates: start: 20120713, end: 20120727

REACTIONS (5)
  - HYPONATRAEMIA [None]
  - DEHYDRATION [None]
  - SHOCK [None]
  - HYPOALBUMINAEMIA [None]
  - BLOOD CREATININE INCREASED [None]
